FAERS Safety Report 9650529 (Version 2)
Quarter: 2014Q1

REPORT INFORMATION
  Report Type: Spontaneous
  Country: US (occurrence: US)
  Receive Date: 20131029
  Receipt Date: 20140319
  Transmission Date: 20141002
  Serious: No
  Sender: FDA-Public Use
  Company Number: US-009507513-1310USA008174

PATIENT
  Age: 33 Year
  Sex: Female
  Weight: 108.84 kg

DRUGS (1)
  1. IMPLANON [Suspect]
     Indication: CONTRACEPTION
     Dosage: UNK
     Route: 059
     Dates: start: 20110324, end: 20140305

REACTIONS (2)
  - Device kink [Unknown]
  - Expired drug administered [Unknown]
